FAERS Safety Report 24404097 (Version 1)
Quarter: 2024Q4

REPORT INFORMATION
  Report Type: Spontaneous
  Country: US (occurrence: None)
  Receive Date: 20241004
  Receipt Date: 20241004
  Transmission Date: 20250115
  Serious: Yes (Other)
  Sender: Public
  Company Number: None

PATIENT
  Sex: Female

DRUGS (4)
  1. BOTOX [Suspect]
     Active Substance: ONABOTULINUMTOXINA
     Indication: Migraine with aura
     Dates: start: 20241004
  2. PANTOPRAZOLE TAB 40MG [Concomitant]
  3. SYNTHROID TAB 1 00MCG [Concomitant]
  4. VITAMIN D CAP 1.25MG [Concomitant]

REACTIONS (3)
  - Migraine [None]
  - Cerebrovascular accident [None]
  - Blindness [None]
